FAERS Safety Report 14634594 (Version 1)
Quarter: 2018Q1

REPORT INFORMATION
  Report Type: Spontaneous
  Country: US (occurrence: US)
  Receive Date: 20180314
  Receipt Date: 20180314
  Transmission Date: 20180509
  Serious: No
  Sender: FDA-Public Use
  Company Number: US-PFIZER INC-2018089090

PATIENT
  Age: 50 Year
  Sex: Female
  Weight: 62.6 kg

DRUGS (4)
  1. CELEBREX [Suspect]
     Active Substance: CELECOXIB
     Indication: NECK PAIN
     Dosage: 200 MG, 1X/DAY
     Route: 048
     Dates: start: 20180228
  2. ALBUTEROL. [Concomitant]
     Active Substance: ALBUTEROL
     Indication: ASTHMA
     Dosage: 2 PUFFS, AS NEEDED (WHEN I NEED TO BUT NOT EVERY DAY, MAYBE 2 WEEKS. I TAKE 2 PUFFS)/90MCG
  3. ORTHO BIOTIC [Interacting]
     Active Substance: PROBIOTICS NOS
     Indication: AUTOIMMUNE THYROIDITIS
     Dosage: UNK
     Dates: start: 20180227
  4. PRILOSEC [Interacting]
     Active Substance: OMEPRAZOLE MAGNESIUM
     Dosage: UNK

REACTIONS (6)
  - Epigastric discomfort [Unknown]
  - Oesophageal pain [Recovering/Resolving]
  - Dysuria [Recovering/Resolving]
  - Bladder pain [Recovering/Resolving]
  - Feeling hot [Recovering/Resolving]
  - Potentiating drug interaction [Unknown]

NARRATIVE: CASE EVENT DATE: 2018
